FAERS Safety Report 8622951-4 (Version None)
Quarter: 2012Q3

REPORT INFORMATION
  Report Type: 
  Country: None (occurrence: None)
  Receive Date: 20120827
  Receipt Date: 20120823
  Transmission Date: 20120928
  Serious: Yes (Hospitalization, Other)
  Sender: FDA-Public Use
  Company Number: PHHY2012BR046432

PATIENT
  Sex: Female

DRUGS (3)
  1. CAPTOPRIL [Concomitant]
     Indication: HYPERTENSION
     Dosage: 25 MG, QID
     Route: 048
     Dates: start: 20050101
  2. HYDROCHLOROTHIAZIDE [Concomitant]
     Indication: HYPERTENSION
     Dosage: 25 MG, QD
     Route: 048
     Dates: start: 20010101
  3. FORMOTEROL FUMARATE [Suspect]
     Indication: ASTHMA
     Dosage: 1 DF, BID
     Dates: start: 20110101

REACTIONS (4)
  - BLOOD CHOLESTEROL INCREASED [None]
  - ABDOMINAL PAIN UPPER [None]
  - ARRHYTHMIA [None]
  - VERTIGO [None]
